FAERS Safety Report 6037956-X (Version None)
Quarter: 2009Q1

REPORT INFORMATION
  Report Type: 
  Country: None (occurrence: None)
  Receive Date: 20090114
  Receipt Date: 20090114
  Transmission Date: 20090719
  Serious: Yes (Other)
  Sender: FDA-Public Use
  Company Number: None

PATIENT
  Sex: Female
  Weight: 72.1219 kg

DRUGS (3)
  1. CRESTOR [Suspect]
     Indication: ARTERIOSCLEROSIS
     Dosage: 5 MG - 1ST WEEK EVERY OTHER DAY ORAL THEN 10 MG FOR LIFE!! STOPPED AT END OF 1ST WEEK
     Route: 048
     Dates: start: 20081121, end: 20081128
  2. CRESTOR [Suspect]
     Indication: BLOOD PRESSURE INCREASED
     Dosage: 5 MG - 1ST WEEK EVERY OTHER DAY ORAL THEN 10 MG FOR LIFE!! STOPPED AT END OF 1ST WEEK
     Route: 048
     Dates: start: 20081121, end: 20081128
  3. CRESTOR [Suspect]
     Indication: HIGH DENSITY LIPOPROTEIN
     Dosage: 5 MG - 1ST WEEK EVERY OTHER DAY ORAL THEN 10 MG FOR LIFE!! STOPPED AT END OF 1ST WEEK
     Route: 048
     Dates: start: 20081121, end: 20081128

REACTIONS (5)
  - ARTHRALGIA [None]
  - CHROMATURIA [None]
  - INSOMNIA [None]
  - NAUSEA [None]
  - VOMITING [None]
